FAERS Safety Report 7342733-3 (Version None)
Quarter: 2011Q1

REPORT INFORMATION
  Report Type: 
  Country: None (occurrence: None)
  Receive Date: 20110301
  Receipt Date: 20110216
  Transmission Date: 20110831
  Serious: Yes (Other)
  Sender: FDA-Public Use
  Company Number: 2011MA001536

PATIENT
  Age: 74 Year
  Sex: Female

DRUGS (16)
  1. LEVOTHYROXINE SODIUM [Concomitant]
  2. PRAVASTATIN [Concomitant]
  3. MEBEVERINE [Concomitant]
  4. PUREPAC [Concomitant]
  5. TRAMADOL [Concomitant]
  6. WARFARIN [Concomitant]
  7. FUROSEMIDE [Concomitant]
  8. ATENOLOL [Concomitant]
  9. OMEPRAZOLE [Concomitant]
  10. GLYCERYL TRINITRATE [Concomitant]
  11. TERBUTALINE [Concomitant]
  12. SPIRIVA [Concomitant]
  13. NICORANDIL [Concomitant]
  14. CLOMIPRAMINE [Concomitant]
  15. ACYCLOVIR [Suspect]
     Indication: HERPES ZOSTER
     Dosage: 800 MG, PO
     Route: 048
     Dates: start: 20101118, end: 20101125
  16. ISOSORBIDE MONONITRATE TABLETS, 20 MG [Concomitant]

REACTIONS (2)
  - INTERNATIONAL NORMALISED RATIO INCREASED [None]
  - COAGULATION TIME PROLONGED [None]
